FAERS Safety Report 10548425 (Version 1)
Quarter: 2014Q4

REPORT INFORMATION
  Report Type: Spontaneous
  Country: US (occurrence: None)
  Receive Date: 20141024
  Receipt Date: 20141024
  Transmission Date: 20150529
  Serious: Yes (Other)
  Sender: FDA-Public Use
  Company Number: KAD201410-001265

PATIENT
  Age: 42 Year
  Sex: Male

DRUGS (7)
  1. HYDROXYUREA. [Suspect]
     Active Substance: HYDROXYUREA
     Indication: CHELATION THERAPY
  2. RIBAVIRIN (RIBAVIRIN) [Suspect]
     Active Substance: RIBAVIRIN
     Indication: HEPATITIS C
  3. DEFEROXAMINE [Suspect]
     Active Substance: DEFEROXAMINE\DEFEROXAMINE MESYLATE
  4. INTERFERON ALFACON-1 [Suspect]
     Active Substance: INTERFERON ALFACON-1
     Indication: HEPATITIS C
  5. SIROLIMUS. [Suspect]
     Active Substance: SIROLIMUS
     Indication: IMMUNOSUPPRESSANT DRUG THERAPY
  6. DEFERASIROX [Suspect]
     Active Substance: DEFERASIROX
     Indication: CHELATION THERAPY
  7. ALEMTUZUMAB [Suspect]
     Active Substance: ALEMTUZUMAB
     Indication: BONE MARROW CONDITIONING REGIMEN

REACTIONS (2)
  - Fatigue [None]
  - Secondary hypogonadism [None]
